FAERS Safety Report 4490904-6 (Version None)
Quarter: 2004Q4

REPORT INFORMATION
  Report Type: 
  Country: None (occurrence: None)
  Receive Date: 20041027
  Receipt Date: 20041021
  Transmission Date: 20050328
  Serious: Yes (Hospitalization, Disabling)
  Sender: FDA-Public Use
  Company Number: HQWYE017425OCT04

PATIENT
  Age: 38 Year
  Sex: Female
  Weight: 52.21 kg

DRUGS (2)
  1. LO/OVRAL [Suspect]
     Indication: CONTRACEPTION
     Dosage: 1 TABLET 1X PER 1 DAY, ORAL
     Route: 048
     Dates: start: 19990101, end: 20040401
  2. MACRODANTIN [Concomitant]

REACTIONS (6)
  - ATRIAL FIBRILLATION [None]
  - CEREBROVASCULAR ACCIDENT [None]
  - HEMIPLEGIA [None]
  - MEMORY IMPAIRMENT [None]
  - SPEECH DISORDER [None]
  - SUPRAVENTRICULAR TACHYCARDIA [None]
